FAERS Safety Report 7065675-X (Version None)
Quarter: 2010Q4

REPORT INFORMATION
  Report Type: 
  Country: None (occurrence: None)
  Receive Date: 20101027
  Receipt Date: 20101006
  Transmission Date: 20110411
  Serious: Yes (Other)
  Sender: FDA-Public Use
  Company Number: PHHY2010SI69728

PATIENT
  Age: 41 Year
  Sex: Male

DRUGS (5)
  1. ALISKIREN/AMOLODIPINE BESYLATE/HYDROCHLOROTHIAZIDE [Suspect]
     Dosage: 150 MG
     Dates: start: 20100331
  2. PRENEWEL [Suspect]
     Indication: ESSENTIAL HYPERTENSION
     Dosage: UNK
  3. PRENEWEL [Suspect]
     Dosage: 4 MG DAILY
     Dates: start: 20100331
  4. INSULIN [Concomitant]
  5. METHOTREXAT [Concomitant]
     Dosage: UNK

REACTIONS (3)
  - BLOOD GLUCOSE INCREASED [None]
  - BLOOD PRESSURE SYSTOLIC INCREASED [None]
  - GLYCOSYLATED HAEMOGLOBIN INCREASED [None]
